FAERS Safety Report 11843208 (Version 1)
Quarter: 2015Q4

REPORT INFORMATION
  Report Type: Report from Study
  Country: US (occurrence: US)
  Receive Date: 20151216
  Receipt Date: 20151216
  Transmission Date: 20160305
  Serious: Yes (Other)
  Sender: FDA-Public Use
  Company Number: US-AMGEN-USASL2015134117

PATIENT
  Age: 69 Year
  Sex: Female

DRUGS (2)
  1. REMICADE [Concomitant]
     Active Substance: INFLIXIMAB
     Dosage: UNK
  2. ENBREL [Suspect]
     Active Substance: ETANERCEPT
     Indication: PRODUCT USED FOR UNKNOWN INDICATION
     Dosage: 50 MG, QWK
     Route: 065
     Dates: start: 1998

REACTIONS (1)
  - Vascular graft [Unknown]

NARRATIVE: CASE EVENT DATE: 201508
